FAERS Safety Report 5228732-6 (Version None)
Quarter: 2007Q1

REPORT INFORMATION
  Report Type: 
  Country: None (occurrence: None)
  Receive Date: 20070131
  Receipt Date: 20070119
  Transmission Date: 20070707
  Serious: Yes (Other)
  Sender: FDA-Public Use
  Company Number: DSA_61232_2006

PATIENT
  Age: 8 Year
  Sex: Male
  Weight: 24.9478 kg

DRUGS (3)
  1. DIASTAT [Suspect]
     Indication: COMPLEX PARTIAL SEIZURES
     Dosage: 10 MG VARIABLE RC
     Route: 054
     Dates: start: 20040101
  2. TRILEPTAL [Concomitant]
  3. NASONEX [Concomitant]

REACTIONS (1)
  - CONVULSION [None]
